FAERS Safety Report 21977199 (Version 1)
Quarter: 2023Q1

REPORT INFORMATION
  Report Type: Spontaneous
  Country: CH (occurrence: None)
  Receive Date: 20230210
  Receipt Date: 20230210
  Transmission Date: 20230418
  Serious: Yes (Other)
  Sender: FDA-Public Use
  Company Number: CH-ROCHE-3282387

PATIENT
  Age: 67 Year
  Sex: Female

DRUGS (19)
  1. RIVOTRIL [Suspect]
     Active Substance: CLONAZEPAM
     Indication: Product used for unknown indication
     Route: 065
     Dates: start: 20221202
  2. ZYPREXA [Suspect]
     Active Substance: OLANZAPINE
     Indication: Product used for unknown indication
     Dosage: 20 MG IN 1 DAY
     Route: 065
     Dates: start: 20221127, end: 20230116
  3. ZYPREXA [Suspect]
     Active Substance: OLANZAPINE
     Dosage: 15 MG IN 1 DAY
     Route: 065
     Dates: start: 20230117
  4. VALPROATE SODIUM [Suspect]
     Active Substance: VALPROATE SODIUM
     Indication: Product used for unknown indication
     Dosage: 500 MG IN 12 HOURS
     Route: 065
     Dates: start: 20221202, end: 20230119
  5. VALPROATE SODIUM [Suspect]
     Active Substance: VALPROATE SODIUM
     Dosage: 500 MG IN THE EVENING
     Route: 065
     Dates: start: 20230120
  6. VALPROATE SODIUM [Suspect]
     Active Substance: VALPROATE SODIUM
     Dosage: 750 MG IN THE MORNING
     Route: 065
     Dates: start: 20230120
  7. ABILIFY [Concomitant]
     Active Substance: ARIPIPRAZOLE
     Dates: start: 20221202
  8. ESCITALOPRAM [Concomitant]
     Active Substance: ESCITALOPRAM OXALATE
     Dates: start: 20221127
  9. OXAZEPAM [Concomitant]
     Active Substance: OXAZEPAM
     Dates: start: 20221202
  10. FLURAZEPAM HYDROCHLORIDE [Concomitant]
     Active Substance: FLURAZEPAM HYDROCHLORIDE
     Dates: start: 20221202
  11. CLOMETHIAZOLE [Concomitant]
     Active Substance: CLOMETHIAZOLE
     Dates: start: 20221129
  12. AMLODIPINE [Concomitant]
     Active Substance: AMLODIPINE BESYLATE
  13. TRIUMEQ [Concomitant]
     Active Substance: ABACAVIR SULFATE\DOLUTEGRAVIR SODIUM\LAMIVUDINE
  14. CALCIUM\CHOLECALCIFEROL [Concomitant]
     Active Substance: CALCIUM\CHOLECALCIFEROL
  15. TORSEMIDE [Concomitant]
     Active Substance: TORSEMIDE
  16. DAFALGAN [Concomitant]
     Active Substance: ACETAMINOPHEN
  17. FIG FRUIT OIL\SORBITOL [Concomitant]
     Active Substance: FIG FRUIT OIL\SORBITOL
  18. VENTOLIN [Concomitant]
     Active Substance: ALBUTEROL SULFATE
  19. NICOTINE [Concomitant]
     Active Substance: NICOTINE

REACTIONS (3)
  - Dysphagia [Not Recovered/Not Resolved]
  - Laryngeal disorder [Unknown]
  - Psychomotor skills impaired [Unknown]

NARRATIVE: CASE EVENT DATE: 20221201
